FAERS Safety Report 11030979 (Version 1)
Quarter: 2015Q2

REPORT INFORMATION
  Report Type: Spontaneous
  Country: US (occurrence: None)
  Receive Date: 20150414
  Receipt Date: 20150414
  Transmission Date: 20150821
  Serious: Yes (Life-Threatening, Hospitalization)
  Sender: FDA-Public Use
  Company Number: None

PATIENT
  Age: 20 Year
  Sex: Female
  Weight: 99.1 kg

DRUGS (1)
  1. IMPLANON [Suspect]
     Active Substance: ETONOGESTREL
     Indication: CONTRACEPTION
     Dosage: 1 IMPLANT; EVERY 3 YEARS
     Route: 059

REACTIONS (5)
  - Coronary artery occlusion [None]
  - Chest pain [None]
  - Unresponsive to stimuli [None]
  - Tachycardia [None]
  - Acute myocardial infarction [None]

NARRATIVE: CASE EVENT DATE: 20150412
